FAERS Safety Report 9356437 (Version 2)
Quarter: 2013Q2

REPORT INFORMATION
  Report Type: Spontaneous
  Country: FR (occurrence: FR)
  Receive Date: 20130619
  Receipt Date: 20130619
  Transmission Date: 20140414
  Serious: Yes (Life-Threatening, Hospitalization, Other)
  Sender: FDA-Public Use
  Company Number: FR-009507513-2010SP049008

PATIENT
  Age: 60 Year
  Sex: Female

DRUGS (18)
  1. NORSET [Suspect]
     Indication: PRODUCT USED FOR UNKNOWN INDICATION
     Dosage: 30 MG, QPM
     Route: 048
     Dates: end: 20100810
  2. REMICADE [Suspect]
     Indication: RHEUMATOID ARTHRITIS
     Dosage: 5 MG/KG, UNKNOWN
     Route: 042
     Dates: start: 200812, end: 20100716
  3. NOVATREX (METHOTREXATE) [Suspect]
     Indication: RHEUMATOID ARTHRITIS
     Dosage: 6 DF, QW
     Route: 048
     Dates: start: 2000, end: 20100810
  4. CORTANCYL [Suspect]
     Indication: RHEUMATOID ARTHRITIS
     Dosage: 14 MG, QD
     Route: 048
     Dates: start: 201002, end: 20100810
  5. CORTANCYL [Suspect]
     Dosage: 28 MG, QD
  6. SPECIAFOLDINE [Suspect]
     Indication: PRODUCT USED FOR UNKNOWN INDICATION
     Dosage: 5 MG, TIW
     Route: 048
     Dates: end: 20100810
  7. TRANXENE [Suspect]
     Indication: PRODUCT USED FOR UNKNOWN INDICATION
     Dosage: 10 MG, QD
     Route: 048
     Dates: end: 20100810
  8. ATARAX (HYDROXYZINE HYDROCHLORIDE) [Suspect]
     Indication: PRODUCT USED FOR UNKNOWN INDICATION
     Dosage: 300 MG, QD
     Route: 048
     Dates: end: 20100810
  9. LIPANOR [Suspect]
     Indication: PRODUCT USED FOR UNKNOWN INDICATION
     Dosage: 100 MG, QD
     Route: 048
  10. CALCIDOSE [Suspect]
     Indication: PRODUCT USED FOR UNKNOWN INDICATION
     Dosage: 500 MG, QD
     Dates: end: 20100810
  11. FOSAVANCE [Suspect]
     Dosage: 1 DF, QW
     Route: 048
     Dates: end: 20100810
  12. SKENAN [Suspect]
     Indication: PRODUCT USED FOR UNKNOWN INDICATION
     Dosage: 30 MG, BID
     Route: 048
     Dates: end: 20100810
  13. ACTISKENAN [Suspect]
     Indication: PRODUCT USED FOR UNKNOWN INDICATION
     Dosage: UNK UNK, PRN
     Route: 048
     Dates: end: 20100810
  14. LEVOTHYROX [Concomitant]
     Indication: PRODUCT USED FOR UNKNOWN INDICATION
     Dosage: 125 ?G, UNK
  15. INEXIUM [Concomitant]
     Indication: PRODUCT USED FOR UNKNOWN INDICATION
  16. EUPANTOL [Concomitant]
     Indication: PRODUCT USED FOR UNKNOWN INDICATION
  17. ZOLPIDEM TARTRATE [Concomitant]
     Indication: PRODUCT USED FOR UNKNOWN INDICATION
  18. ACETAMINOPHEN [Concomitant]

REACTIONS (3)
  - Lung disorder [Recovered/Resolved]
  - Sepsis [Recovered/Resolved]
  - Acidosis [Recovered/Resolved]
